FAERS Safety Report 8580615-X (Version None)
Quarter: 2012Q3

REPORT INFORMATION
  Report Type: 
  Country: None (occurrence: None)
  Receive Date: 20120809
  Receipt Date: 20120803
  Transmission Date: 20120928
  Serious: Yes (Hospitalization)
  Sender: FDA-Public Use
  Company Number: US-AMGEN-USASP2012048891

PATIENT
  Age: 76 Year
  Sex: Male

DRUGS (1)
  1. ENBREL [Suspect]
     Indication: RHEUMATOID ARTHRITIS
     Dosage: 50 MG, QWK
     Dates: start: 20110615

REACTIONS (13)
  - NAUSEA [None]
  - CARDIAC ARREST [None]
  - ABDOMINAL PAIN [None]
  - UNEVALUABLE EVENT [None]
  - WHITE BLOOD CELL COUNT INCREASED [None]
  - DISORIENTATION [None]
  - BODY TEMPERATURE INCREASED [None]
  - VOMITING [None]
  - PAIN [None]
  - ELECTROLYTE DEPLETION [None]
  - RHEUMATOID ARTHRITIS [None]
  - ASTHENIA [None]
  - CONFUSIONAL STATE [None]
